FAERS Safety Report 14305566 (Version 1)
Quarter: 2017Q4

REPORT INFORMATION
  Report Type: Spontaneous
  Country: US (occurrence: US)
  Receive Date: 20171219
  Receipt Date: 20171219
  Transmission Date: 20180321
  Serious: Yes (Death, Other)
  Sender: FDA-Public Use
  Company Number: US-OTSUKA-DJ201406209

PATIENT
  Age: 38 Year
  Sex: Female
  Weight: 56.69 kg

DRUGS (1)
  1. ABILIFY [Suspect]
     Active Substance: ARIPIPRAZOLE
     Indication: PRODUCT USED FOR UNKNOWN INDICATION
     Dosage: UNK
     Route: 065

REACTIONS (3)
  - Hallucination, auditory [Fatal]
  - Hallucination, visual [Fatal]
  - Completed suicide [Fatal]

NARRATIVE: CASE EVENT DATE: 20131216
